FAERS Safety Report 6300051-6 (Version None)
Quarter: 2009Q3

REPORT INFORMATION
  Report Type: 
  Country: None (occurrence: None)
  Receive Date: 20090806
  Receipt Date: 20090728
  Transmission Date: 20100115
  Serious: Yes (Other)
  Sender: FDA-Public Use
  Company Number: US-ELI_LILLY_AND_COMPANY-US200907006421

PATIENT
  Sex: Female

DRUGS (2)
  1. CYMBALTA [Suspect]
     Dosage: 30 MG, UNK
  2. CYMBALTA [Suspect]
     Dosage: 60 MG, 2/D

REACTIONS (6)
  - AMNESIA [None]
  - FALL [None]
  - HALLUCINATION [None]
  - JOINT INJURY [None]
  - SYNCOPE [None]
  - UPPER LIMB FRACTURE [None]
